FAERS Safety Report 8492664 (Version 2)
Quarter: 2013Q2

REPORT INFORMATION
  Report Type: Spontaneous
  Country: CA (occurrence: CA)
  Receive Date: 20120403
  Receipt Date: 20130627
  Transmission Date: 20140414
  Serious: Yes (Other)
  Sender: FDA-Public Use
  Company Number: CA-ARROW GEN-2012-04967

PATIENT
  Age: 54 Year
  Sex: Female
  Weight: 79 kg

DRUGS (6)
  1. TOPIRAMATE [Suspect]
     Indication: MIGRAINE
     Dosage: 25 MG, DAILY
     Route: 048
     Dates: start: 20120321
  2. TOPIRAMATE [Suspect]
     Dosage: 25 MG, DAILY
     Route: 048
     Dates: start: 20120302, end: 20120308
  3. TOPIRAMATE [Suspect]
     Dosage: 50 MG, DAILY
     Route: 048
     Dates: start: 20120319, end: 20120320
  4. TOPIRAMATE [Suspect]
     Dosage: 50 MG, DAILY
     Route: 048
     Dates: start: 20120309, end: 20120315
  5. TOPIRAMATE [Suspect]
     Dosage: 75 MG, DAILY
     Route: 048
     Dates: start: 20120316, end: 20120318
  6. WARFARIN [Concomitant]
     Indication: PRODUCT USED FOR UNKNOWN INDICATION
     Dosage: 11 MG, DAILY
     Dates: start: 201107

REACTIONS (8)
  - Balance disorder [Recovering/Resolving]
  - Coordination abnormal [Recovering/Resolving]
  - Dizziness [Recovering/Resolving]
  - Drug ineffective [Not Recovered/Not Resolved]
  - Dysarthria [Recovering/Resolving]
  - Dysgeusia [Recovering/Resolving]
  - Paraesthesia [Recovering/Resolving]
  - Headache [Not Recovered/Not Resolved]
